FAERS Safety Report 7085488-2 (Version None)
Quarter: 2010Q4

REPORT INFORMATION
  Report Type: 
  Country: None (occurrence: None)
  Receive Date: 20101105
  Receipt Date: 20101029
  Transmission Date: 20110411
  Serious: Yes (Hospitalization)
  Sender: FDA-Public Use
  Company Number: FR-PFIZER INC-2010137953

PATIENT
  Age: 86 Year
  Sex: Female

DRUGS (9)
  1. ALDACTONE [Suspect]
     Dosage: 75 MG, 1X/DAY
     Route: 048
     Dates: end: 20100824
  2. PERINDOPRIL ERBUMINE [Suspect]
     Dosage: 2.5 MG, 1X/DAY
     Route: 048
     Dates: end: 20100825
  3. XANAX [Concomitant]
     Dosage: 0.5 MG, UNK
  4. SPIRIVA [Concomitant]
     Dosage: 18 UG, UNK
  5. INSULATARD [Concomitant]
     Dosage: 100 IU/ML, UNK
  6. CARDENSIEL [Concomitant]
     Dosage: 1.25 MG, UNK
  7. KARDEGIC [Concomitant]
  8. PLAVIX [Concomitant]
     Dosage: 75 MG, UNK
  9. SERETIDE DISKUS [Concomitant]

REACTIONS (3)
  - DEPRESSED LEVEL OF CONSCIOUSNESS [None]
  - DISORIENTATION [None]
  - HYPONATRAEMIA [None]
